FAERS Safety Report 14070108 (Version 3)
Quarter: 2017Q4

REPORT INFORMATION
  Report Type: Report from Study
  Country: None (occurrence: CH)
  Receive Date: 20171010
  Receipt Date: 20171016
  Transmission Date: 20180321
  Serious: Yes (Death, Hospitalization, Other)
  Sender: FDA-Public Use
  Company Number: CH-ABBVIE-17K-151-2126531-00

PATIENT
  Sex: Male

DRUGS (1)
  1. DUODOPA [Suspect]
     Active Substance: CARBIDOPA\LEVODOPA
     Indication: PARKINSON^S DISEASE
     Route: 050
     Dates: start: 20141013, end: 2017

REACTIONS (4)
  - Cerebrovascular accident [Unknown]
  - Freezing phenomenon [Unknown]
  - Dyskinesia [Unknown]
  - Death [Fatal]

NARRATIVE: CASE EVENT DATE: 2017
